FAERS Safety Report 6104721-4 (Version None)
Quarter: 2009Q1

REPORT INFORMATION
  Report Type: 
  Country: None (occurrence: None)
  Receive Date: 20090302
  Receipt Date: 20090217
  Transmission Date: 20090719
  Serious: Yes (Death)
  Sender: FDA-Public Use
  Company Number: 220002N08USA

PATIENT
  Age: 17 Year
  Sex: Male
  Weight: 54.2 kg

DRUGS (3)
  1. SAIZEN [Suspect]
     Dosage: SUBCUTANEOUS,  3.4 MG, 6 IN 1 WEEKS, SUBCUTANEOUS
     Route: 058
     Dates: start: 20061102, end: 20081103
  2. SAIZEN [Suspect]
     Dosage: SUBCUTANEOUS,  3.4 MG, 6 IN 1 WEEKS, SUBCUTANEOUS
     Route: 058
     Dates: start: 20080507, end: 20081108
  3. ANTTCONVULSANT (ANTIEPILEPTICS) [Concomitant]

REACTIONS (1)
  - HYDROCEPHALUS [None]
